FAERS Safety Report 15423353 (Version 1)
Quarter: 2018Q3

REPORT INFORMATION
  Report Type: Spontaneous
  Country: DE (occurrence: DE)
  Receive Date: 20180925
  Receipt Date: 20180925
  Transmission Date: 20181010
  Serious: Yes (Other)
  Sender: FDA-Public Use
  Company Number: DE-AUROBINDO-AUR-APL-2018-047180

PATIENT
  Age: 72 Year
  Sex: Male
  Weight: 81.8 kg

DRUGS (25)
  1. VALSARTAN. [Concomitant]
     Active Substance: VALSARTAN
     Indication: BLOOD PRESSURE INCREASED
     Dosage: 320 MILLIGRAM, ONCE A DAY
     Route: 048
  2. CORTISONE [Concomitant]
     Active Substance: CORTISONE\HYDROCORTISONE
     Indication: GOUT
     Dosage: UNK
     Route: 065
  3. TAMSULOSIN 1A PHARMA [Concomitant]
     Indication: PROSTATOMEGALY
     Dosage: 0.4 MILLIGRAM, DAILY
     Route: 048
  4. APIXABAN [Concomitant]
     Active Substance: APIXABAN
     Indication: PRODUCT USED FOR UNKNOWN INDICATION
     Dosage: 10 MILLIGRAM, ONCE A DAY
     Route: 048
  5. ATOZET [Concomitant]
     Active Substance: ATORVASTATIN CALCIUM\EZETIMIBE
     Indication: BLOOD CHOLESTEROL
     Dosage: 1 MILLIGRAM, ONCE A DAY
     Route: 048
  6. TORASEMID?1A PHARMA [Suspect]
     Active Substance: TORSEMIDE
     Indication: CARDIAC FAILURE CHRONIC
     Dosage: 40 MILLIGRAM, ONCE A DAY
     Route: 048
     Dates: start: 20180129, end: 20180225
  7. TORASEMID?1A PHARMA [Suspect]
     Active Substance: TORSEMIDE
     Dosage: 20 MILLIGRAM, 3 TIMES A DAY
     Route: 048
     Dates: start: 20180226
  8. TORASEMID?1A PHARMA [Suspect]
     Active Substance: TORSEMIDE
     Dosage: 70 MILLIGRAM, DAILY70 MG, (20MG?30MG?20MG)
     Route: 048
  9. MOXONIDIN 1 A PHARM [Concomitant]
     Indication: BLOOD PRESSURE INCREASED
     Dosage: 0.6 MILLIGRAM, ONCE A DAY
     Route: 048
  10. PANTOPRAZOLE [Concomitant]
     Active Substance: PANTOPRAZOLE
     Indication: DYSPEPSIA
     Dosage: 40 MILLIGRAM, ONCE A DAY
     Route: 048
  11. SITAGLIPTIN [Concomitant]
     Active Substance: SITAGLIPTIN
     Indication: BLOOD GLUCOSE
     Dosage: 25 MILLIGRAM, ONCE A DAY
     Route: 048
  12. TILIDIN [Concomitant]
     Active Substance: NALOXONE HYDROCHLORIDE\TILIDINE HYDROCHLORIDE
     Indication: GOUT
     Dosage: 50 MILLIGRAM, ONCE A DAY
     Route: 048
     Dates: start: 20180423
  13. EBRANTIL                           /00631801/ [Concomitant]
     Active Substance: URAPIDIL
     Indication: BLOOD PRESSURE INCREASED
     Dosage: 90 MILLIGRAM, ONCE A DAY
     Route: 048
  14. METOPROLOL ? 1 A PHARMA [Concomitant]
     Indication: HEART RATE IRREGULAR
     Dosage: 47.5 MILLIGRAM, ONCE A DAY
     Route: 048
  15. NOVAMINSULFON [Concomitant]
     Active Substance: METAMIZOLE
     Indication: PAIN
     Dosage: UNK
     Route: 065
  16. AMLODIPINE [Suspect]
     Active Substance: AMLODIPINE BESYLATE
     Indication: PRODUCT USED FOR UNKNOWN INDICATION
     Dosage: UNK
     Route: 065
  17. PREDNISOLON                        /00016201/ [Suspect]
     Active Substance: PREDNISOLONE
     Indication: GOUT
     Dosage: 20 MILLIGRAM, DAILY(SLIGHTLY TAPERED )
     Route: 048
     Dates: end: 20180323
  18. MINOXIDIL. [Concomitant]
     Active Substance: MINOXIDIL
     Indication: BLOOD PRESSURE INCREASED
     Dosage: 5 MILLIGRAM, ONCE A DAY
     Route: 048
  19. TORASEMIDE [Suspect]
     Active Substance: TORSEMIDE
     Dosage: 40 MG IN THE EARLY, 20 OR 40 MG AT NOON, SOMETIMES FURTHER INTAKES IN THE EVENING
     Route: 065
  20. FINASTERID [Concomitant]
     Active Substance: FINASTERIDE
     Indication: ANDROGENETIC ALOPECIA
     Dosage: 5 MILLIGRAM, ONCE A DAY
     Route: 048
  21. TORASEMIDE [Suspect]
     Active Substance: TORSEMIDE
     Indication: WEIGHT ABNORMAL
     Dosage: 20 MG IN THE EARLY, 20 MG AT NOON
     Route: 065
  22. TORASEMID?1A PHARMA [Suspect]
     Active Substance: TORSEMIDE
     Dosage: 90 MILLIGRAM, DAILY90 MG, QD (20 MGX2?20MGX2?20MGX1)
     Route: 048
     Dates: start: 20180320, end: 20180323
  23. TORASEMID?1A PHARMA [Suspect]
     Active Substance: TORSEMIDE
     Dosage: 20 MG, PRN
     Route: 048
  24. TORASEMID?1A PHARMA [Suspect]
     Active Substance: TORSEMIDE
     Dosage: 40 MILLIGRAM, DAILY(20 MG, BID )
     Route: 048
     Dates: start: 20180418
  25. AMIODARON HEUMANN [Concomitant]
     Indication: ARRHYTHMIA
     Dosage: 200 MILLIGRAM, ONCE A DAY
     Route: 048
     Dates: start: 20180218

REACTIONS (20)
  - Tooth loss [Not Recovered/Not Resolved]
  - Arthralgia [Not Recovered/Not Resolved]
  - Weight increased [Recovering/Resolving]
  - Oedema peripheral [Recovered/Resolved]
  - Fatigue [Not Recovered/Not Resolved]
  - Gout [Not Recovered/Not Resolved]
  - Renal failure [Not Recovered/Not Resolved]
  - Heart rate increased [Not Recovered/Not Resolved]
  - Blood pressure fluctuation [Not Recovered/Not Resolved]
  - Iron deficiency [Not Recovered/Not Resolved]
  - Cardiac failure [Unknown]
  - Skin ulcer [Not Recovered/Not Resolved]
  - Pain [Not Recovered/Not Resolved]
  - Nocturia [Not Recovered/Not Resolved]
  - Blood uric acid increased [Not Recovered/Not Resolved]
  - Wound secretion [Not Recovered/Not Resolved]
  - Oedema [Unknown]
  - Wound [Not Recovered/Not Resolved]
  - Weight decreased [Unknown]
  - Inappropriate schedule of drug administration [Not Recovered/Not Resolved]

NARRATIVE: CASE EVENT DATE: 2018
